FAERS Safety Report 12456290 (Version 2)
Quarter: 2016Q3

REPORT INFORMATION
  Report Type: Report from Study
  Country: US (occurrence: US)
  Receive Date: 20160610
  Receipt Date: 20160713
  Transmission Date: 20161109
  Serious: Yes (Hospitalization, Other)
  Sender: FDA-Public Use
  Company Number: US-BIOGEN-2016BI00248861

PATIENT
  Age: 32 Year
  Sex: Female

DRUGS (1)
  1. AVONEX [Suspect]
     Active Substance: INTERFERON BETA-1A
     Indication: MULTIPLE SCLEROSIS
     Route: 065
     Dates: start: 20120701, end: 20150530

REACTIONS (3)
  - Foetal heart rate abnormal [Recovered/Resolved]
  - Maternal exposure during pregnancy [Recovered/Resolved]
  - Gestational hypertension [Recovered/Resolved]

NARRATIVE: CASE EVENT DATE: 20160304
